FAERS Safety Report 26106726 (Version 1)
Quarter: 2025Q4

REPORT INFORMATION
  Report Type: Spontaneous
  Country: CN (occurrence: CN)
  Receive Date: 20251201
  Receipt Date: 20251201
  Transmission Date: 20260117
  Serious: Yes (Hospitalization, Other)
  Sender: SANOFI AVENTIS
  Company Number: CN-SA-2025SA355714

PATIENT
  Age: 16 Year
  Sex: Female
  Weight: 42 kg

DRUGS (4)
  1. ZOLPIDEM TARTRATE [Suspect]
     Active Substance: ZOLPIDEM TARTRATE
     Indication: Intentional overdose
     Dosage: 3 DF, QD
     Route: 048
     Dates: start: 20251124, end: 20251124
  2. ZOLPIDEM TARTRATE [Suspect]
     Active Substance: ZOLPIDEM TARTRATE
     Indication: Agitation
  3. OLANZAPINE AND FLUOXETINE [Suspect]
     Active Substance: FLUOXETINE HYDROCHLORIDE\OLANZAPINE
     Indication: Intentional overdose
     Dosage: 5 DF, QD
     Route: 048
     Dates: start: 20251124, end: 20251124
  4. OLANZAPINE AND FLUOXETINE [Suspect]
     Active Substance: FLUOXETINE HYDROCHLORIDE\OLANZAPINE
     Indication: Agitation

REACTIONS (6)
  - Affect lability [Recovering/Resolving]
  - Sinus tachycardia [Recovering/Resolving]
  - Hypokalaemia [Recovering/Resolving]
  - Dysphoria [Recovering/Resolving]
  - Somnolence [Recovering/Resolving]
  - Intentional overdose [Recovering/Resolving]

NARRATIVE: CASE EVENT DATE: 20251124
